FAERS Safety Report 24742120 (Version 3)
Quarter: 2024Q4

REPORT INFORMATION
  Report Type: Spontaneous
  Country: JP (occurrence: JP)
  Receive Date: 20241217
  Receipt Date: 20241229
  Transmission Date: 20250114
  Serious: Yes (Other)
  Sender: ALEXION PHARMACEUTICALS
  Company Number: JP-ASTRAZENECA-240140369_012620_P_1

PATIENT
  Age: 75 Year

DRUGS (26)
  1. TRUQAP [Suspect]
     Active Substance: CAPIVASERTIB
     Indication: Breast cancer
     Dosage: NUMBER OF SEPARATE DOSAGES UNKNOWN, DOSING 4 DAYS IN A ROW FOLLOWED BY 3 DAYS OFF
     Route: 048
  2. TRUQAP [Suspect]
     Active Substance: CAPIVASERTIB
     Dosage: NUMBER OF SEPARATE DOSAGES UNKNOWN, DOSING 4 DAYS IN A ROW FOLLOWED BY 3 DAYS OFF
  3. TRUQAP [Suspect]
     Active Substance: CAPIVASERTIB
     Dosage: NUMBER OF SEPARATE DOSAGES UNKNOWN, DOSING 4 DAYS IN A ROW FOLLOWED BY 3 DAYS OFF
     Route: 048
  4. TRUQAP [Suspect]
     Active Substance: CAPIVASERTIB
     Dosage: NUMBER OF SEPARATE DOSAGES UNKNOWN, DOSING 4 DAYS IN A ROW FOLLOWED BY 3 DAYS OFF
  5. TRUQAP [Suspect]
     Active Substance: CAPIVASERTIB
     Dosage: NUMBER OF SEPARATE DOSAGES UNKNOWN, DOSING 4 DAYS IN A ROW FOLLOWED BY 3 DAYS OFF
     Route: 048
  6. TRUQAP [Suspect]
     Active Substance: CAPIVASERTIB
     Dosage: NUMBER OF SEPARATE DOSAGES UNKNOWN, DOSING 4 DAYS IN A ROW FOLLOWED BY 3 DAYS OFF
  7. TRUQAP [Suspect]
     Active Substance: CAPIVASERTIB
     Dosage: NUMBER OF SEPARATE DOSAGES UNKNOWN, DOSING 4 DAYS IN A ROW FOLLOWED BY 3 DAYS OFF
     Route: 048
  8. TRUQAP [Suspect]
     Active Substance: CAPIVASERTIB
     Dosage: NUMBER OF SEPARATE DOSAGES UNKNOWN, DOSING 4 DAYS IN A ROW FOLLOWED BY 3 DAYS OFF
  9. TRUQAP [Suspect]
     Active Substance: CAPIVASERTIB
     Dosage: NUMBER OF SEPARATE DOSAGES UNKNOWN, DOSING 4 DAYS IN A ROW FOLLOWED BY 3 DAYS OFF
  10. TRUQAP [Suspect]
     Active Substance: CAPIVASERTIB
     Dosage: NUMBER OF SEPARATE DOSAGES UNKNOWN, DOSING 4 DAYS IN A ROW FOLLOWED BY 3 DAYS OFF
     Route: 048
  11. TRUQAP [Suspect]
     Active Substance: CAPIVASERTIB
     Dosage: NUMBER OF SEPARATE DOSAGES UNKNOWN, DOSING 4 DAYS IN A ROW FOLLOWED BY 3 DAYS OFF
  12. TRUQAP [Suspect]
     Active Substance: CAPIVASERTIB
     Dosage: NUMBER OF SEPARATE DOSAGES UNKNOWN, DOSING 4 DAYS IN A ROW FOLLOWED BY 3 DAYS OFF
     Route: 048
  13. FULVESTRANT [Suspect]
     Active Substance: FULVESTRANT
     Indication: Breast cancer
     Dosage: DOSE UNKNOWN
     Route: 030
  14. FULVESTRANT [Suspect]
     Active Substance: FULVESTRANT
     Dosage: DOSE UNKNOWN
  15. FULVESTRANT [Suspect]
     Active Substance: FULVESTRANT
     Dosage: DOSE UNKNOWN
     Route: 030
  16. FULVESTRANT [Suspect]
     Active Substance: FULVESTRANT
     Dosage: DOSE UNKNOWN
  17. FULVESTRANT [Suspect]
     Active Substance: FULVESTRANT
     Dosage: DOSE UNKNOWN
     Route: 030
  18. FULVESTRANT [Suspect]
     Active Substance: FULVESTRANT
     Dosage: DOSE UNKNOWN
  19. FULVESTRANT [Suspect]
     Active Substance: FULVESTRANT
     Dosage: DOSE UNKNOWN
     Route: 030
  20. FULVESTRANT [Suspect]
     Active Substance: FULVESTRANT
     Dosage: DOSE UNKNOWN
  21. FULVESTRANT [Suspect]
     Active Substance: FULVESTRANT
     Dosage: DOSE UNKNOWN
  22. FULVESTRANT [Suspect]
     Active Substance: FULVESTRANT
     Dosage: DOSE UNKNOWN
     Route: 030
  23. FULVESTRANT [Suspect]
     Active Substance: FULVESTRANT
     Dosage: DOSE UNKNOWN
  24. FULVESTRANT [Suspect]
     Active Substance: FULVESTRANT
     Dosage: DOSE UNKNOWN
     Route: 030
  25. ANTI DIABETIC [Concomitant]
     Dosage: DOSE UNKNOWN
     Route: 065
  26. ANTI DIABETIC [Concomitant]
     Dosage: DOSE UNKNOWN
     Route: 065

REACTIONS (3)
  - Diabetes mellitus [Not Recovered/Not Resolved]
  - Sepsis [Not Recovered/Not Resolved]
  - Infected skin ulcer [Not Recovered/Not Resolved]
